FAERS Safety Report 4693976-9 (Version None)
Quarter: 2005Q2

REPORT INFORMATION
  Report Type: 
  Country: None (occurrence: None)
  Receive Date: 20050617
  Receipt Date: 20050311
  Transmission Date: 20051028
  Serious: Yes (Hospitalization, Disabling, Other)
  Sender: FDA-Public Use
  Company Number: US-MERCK-0503USA02573

PATIENT
  Age: 46 Year
  Sex: Male
  Weight: 107 kg

DRUGS (11)
  1. VIOXX [Suspect]
     Indication: GOUT
     Route: 048
     Dates: start: 20010301, end: 20041001
  2. VIOXX [Suspect]
     Route: 048
     Dates: start: 20010301, end: 20041001
  3. VIOXX [Suspect]
     Indication: ARTHRITIS
     Route: 048
     Dates: start: 20010301, end: 20041001
  4. VIOXX [Suspect]
     Route: 048
     Dates: start: 20010301, end: 20041001
  5. VIOXX [Suspect]
     Route: 048
     Dates: start: 20010301, end: 20041001
  6. ASPIRIN [Concomitant]
     Indication: PROPHYLAXIS
     Route: 065
     Dates: start: 20010501
  7. EXCEDRIN (MIGRAINE) [Concomitant]
     Route: 065
     Dates: start: 20010301
  8. XANAX [Concomitant]
     Route: 065
     Dates: start: 20010301, end: 20010501
  9. VALIUM [Concomitant]
     Route: 065
     Dates: start: 20010301, end: 20010501
  10. EFFEXOR [Concomitant]
     Route: 065
     Dates: start: 20010301, end: 20010501
  11. VIOXX [Suspect]
     Route: 048
     Dates: start: 20010301, end: 20041001

REACTIONS (36)
  - AORTIC ANEURYSM [None]
  - AORTIC STENOSIS [None]
  - CARDIAC DISORDER [None]
  - CAROTID ARTERY STENOSIS [None]
  - CEREBROVASCULAR ACCIDENT [None]
  - CHEST PAIN [None]
  - CHRONIC FATIGUE SYNDROME [None]
  - COGNITIVE DISORDER [None]
  - CORONARY ARTERY DISEASE [None]
  - DEHYDRATION [None]
  - DELIRIUM [None]
  - DEPRESSION [None]
  - DIZZINESS [None]
  - DYSPNOEA [None]
  - EPISTAXIS [None]
  - GASTROINTESTINAL DISORDER [None]
  - GENERALISED ANXIETY DISORDER [None]
  - GOUT [None]
  - HEADACHE [None]
  - HYPERHIDROSIS [None]
  - HYPERTENSION [None]
  - HYPERTENSIVE HEART DISEASE [None]
  - HYPOAESTHESIA [None]
  - INTERNATIONAL NORMALISED RATIO INCREASED [None]
  - LOSS OF CONSCIOUSNESS [None]
  - MUSCLE SPASMS [None]
  - NAUSEA [None]
  - NECK PAIN [None]
  - NON-CARDIAC CHEST PAIN [None]
  - PAIN IN EXTREMITY [None]
  - PANIC DISORDER [None]
  - RHINORRHOEA [None]
  - SINUSITIS [None]
  - SYNCOPE [None]
  - THROMBOSIS [None]
  - TRANSIENT ISCHAEMIC ATTACK [None]
